FAERS Safety Report 9983448 (Version 2)
Quarter: 2014Q1

REPORT INFORMATION
  Report Type: Spontaneous
  Country: US (occurrence: US)
  Receive Date: 20140307
  Receipt Date: 20140311
  Transmission Date: 20141002
  Serious: Yes (Hospitalization, Other)
  Sender: FDA-Public Use
  Company Number: US-RB-063549-14

PATIENT
  Age: 50 Year
  Sex: Female

DRUGS (1)
  1. DELSYM 12 HOURS GRAPE FLAVOR [Suspect]
     Indication: COUGH
     Dosage: PATIENT TOOK DRUG FOR ABOUT 5 DAYS.
     Route: 048
     Dates: end: 20140224

REACTIONS (8)
  - Renal failure [Not Recovered/Not Resolved]
  - Blood creatine phosphokinase increased [Not Recovered/Not Resolved]
  - Apparent death [Not Recovered/Not Resolved]
  - Dehydration [Not Recovered/Not Resolved]
  - Anxiety [Unknown]
  - Muscle contractions involuntary [Not Recovered/Not Resolved]
  - Hypersensitivity [Unknown]
  - Malaise [Not Recovered/Not Resolved]
